FAERS Safety Report 25976859 (Version 1)
Quarter: 2025Q4

REPORT INFORMATION
  Report Type: Spontaneous
  Country: US (occurrence: US)
  Receive Date: 20251029
  Receipt Date: 20251029
  Transmission Date: 20260118
  Serious: No
  Sender: ETON PHARMACEUTICALS, INC
  Company Number: US-IPSEN Group, Research and Development-2024-17599

PATIENT
  Sex: Male
  Weight: 60.32 kg

DRUGS (4)
  1. INCRELEX [Suspect]
     Active Substance: MECASERMIN
     Indication: Hypopituitarism
     Dosage: 40 MG/4 ML
     Route: 058
  2. INCRELEX [Suspect]
     Active Substance: MECASERMIN
     Indication: Off label use
  3. INCRELEX [Suspect]
     Active Substance: MECASERMIN
     Indication: Primary insulin like growth factor-1 deficiency
  4. ANASTROZOLE [Concomitant]
     Active Substance: ANASTROZOLE

REACTIONS (3)
  - Off label use [Unknown]
  - Off label use [Unknown]
  - Product prescribing issue [Unknown]
